FAERS Safety Report 10229297 (Version 2)
Quarter: 2014Q3

REPORT INFORMATION
  Report Type: Report from Study
  Country: US (occurrence: US)
  Receive Date: 20140611
  Receipt Date: 20140707
  Transmission Date: 20150326
  Serious: Yes (Other)
  Sender: FDA-Public Use
  Company Number: US-BIOGENIDEC-2014BI053988

PATIENT
  Age: 48 Year
  Sex: Female

DRUGS (2)
  1. AVONEX [Suspect]
     Active Substance: INTERFERON BETA-1A
     Indication: MULTIPLE SCLEROSIS
     Route: 030
     Dates: start: 20020730
  2. AVONEX [Suspect]
     Active Substance: INTERFERON BETA-1A
     Indication: MULTIPLE SCLEROSIS
     Route: 030
     Dates: start: 20020914

REACTIONS (8)
  - Injection site bruising [Unknown]
  - Hyperhidrosis [Recovered/Resolved]
  - Menorrhagia [Recovered/Resolved]
  - Hot flush [Not Recovered/Not Resolved]
  - Increased tendency to bruise [Unknown]
  - Injection site haemorrhage [Recovered/Resolved]
  - Dysmenorrhoea [Recovered/Resolved]
  - Uterine cyst [Unknown]

NARRATIVE: CASE EVENT DATE: 2012
